FAERS Safety Report 25405667 (Version 1)
Quarter: 2025Q2

REPORT INFORMATION
  Report Type: Report from Study
  Country: NL (occurrence: NL)
  Receive Date: 20250606
  Receipt Date: 20250606
  Transmission Date: 20250717
  Serious: Yes (Hospitalization, Other)
  Sender: ACCORD
  Company Number: None

PATIENT
  Age: 73 Year
  Sex: Male

DRUGS (11)
  1. CAPECITABINE [Suspect]
     Active Substance: CAPECITABINE
     Indication: Adenocarcinoma gastric
     Dosage: 1000 MILLIGRAM/SQ. METER, BID
     Dates: start: 20241121, end: 20250109
  2. OXALIPLATIN [Suspect]
     Active Substance: OXALIPLATIN
     Indication: Adenocarcinoma gastric
     Dosage: 130 MILLIGRAM/SQ. METER, 1 DOSE/3 WEEKS
     Dates: start: 20241121, end: 20250102
  3. ZANIDATAMAB [Suspect]
     Active Substance: ZANIDATAMAB
     Indication: Adenocarcinoma gastric
     Dosage: 2400 MILLIGRAM, Q3H
     Dates: start: 20241121, end: 20250102
  4. LOPERAMIDE [Suspect]
     Active Substance: LOPERAMIDE
     Indication: Prophylaxis against diarrhoea
     Dosage: 4 MILLIGRAM, BID
     Dates: start: 20241121
  5. LOPERAMIDE [Concomitant]
     Active Substance: LOPERAMIDE
     Indication: Diarrhoea
     Dates: start: 20241121
  6. PANTOPRAZOLE [Concomitant]
     Active Substance: PANTOPRAZOLE
     Indication: Gastric neoplasm
  7. TEMAZEPAM [Concomitant]
     Active Substance: TEMAZEPAM
     Indication: Sleep disorder
  8. METOCLOPRAMIDE [Concomitant]
     Active Substance: METOCLOPRAMIDE
     Indication: Nausea
     Dates: end: 20250122
  9. OXALIPLATIN [Suspect]
     Active Substance: OXALIPLATIN
     Indication: Adenocarcinoma gastric
     Dates: end: 20250122
  10. ZANIDATAMAB [Suspect]
     Active Substance: ZANIDATAMAB
     Indication: Adenocarcinoma gastric
  11. CAPECITABINE [Suspect]
     Active Substance: CAPECITABINE
     Indication: Adenocarcinoma gastric
     Dates: end: 20250122

REACTIONS (1)
  - Cerebrovascular accident [Recovered/Resolved with Sequelae]

NARRATIVE: CASE EVENT DATE: 20250110
